FAERS Safety Report 4596124-9 (Version None)
Quarter: 2005Q1

REPORT INFORMATION
  Report Type: 
  Country: None (occurrence: None)
  Receive Date: 20050225
  Receipt Date: 20050214
  Transmission Date: 20050727
  Serious: Yes (Other)
  Sender: FDA-Public Use
  Company Number: 2005029983

PATIENT
  Age: 21 Year
  Sex: Male
  Weight: 88.4514 kg

DRUGS (1)
  1. UNISOM [Suspect]
     Indication: INTENTIONAL MISUSE
     Dosage: ABOUT 20 PILLS ONCE, ORAL
     Route: 048
     Dates: start: 20050214, end: 20050214

REACTIONS (3)
  - HYPOPNOEA [None]
  - INTENTIONAL MISUSE [None]
  - VOMITING [None]
